FAERS Safety Report 9507932 (Version 1)
Quarter: 2013Q3

REPORT INFORMATION
  Report Type: Report from Study
  Country: JP (occurrence: JP)
  Receive Date: 20130909
  Receipt Date: 20130909
  Transmission Date: 20140515
  Serious: Yes (Death, Other)
  Sender: FDA-Public Use
  Company Number: PHHY2013JP098390

PATIENT
  Age: 69 Year
  Sex: Female

DRUGS (2)
  1. AFINITOR [Suspect]
     Indication: METASTATIC RENAL CELL CARCINOMA
     Dosage: 10 MG, DAILY
     Route: 048
     Dates: start: 20110512, end: 20110826
  2. LASIX [Concomitant]
     Dosage: 20 MG
     Route: 048
     Dates: start: 20110324

REACTIONS (5)
  - C-reactive protein increased [Unknown]
  - White blood cell count decreased [Unknown]
  - Haemoglobin decreased [Unknown]
  - Metastatic renal cell carcinoma [Fatal]
  - Malignant neoplasm progression [Fatal]
